FAERS Safety Report 14110506 (Version 1)
Quarter: 2017Q4

REPORT INFORMATION
  Report Type: Spontaneous
  Country: KR (occurrence: KR)
  Receive Date: 20171020
  Receipt Date: 20171020
  Transmission Date: 20180321
  Serious: Yes (Other)
  Sender: FDA-Public Use
  Company Number: KR-009507513-1707KOR011698

PATIENT
  Sex: Female

DRUGS (1)
  1. IMPLANON [Suspect]
     Active Substance: ETONOGESTREL
     Indication: PRODUCT USED FOR UNKNOWN INDICATION
     Dosage: 1 IMPLANT, UNK
     Route: 059
     Dates: start: 20170712, end: 20171014

REACTIONS (13)
  - Weight increased [Unknown]
  - Adenomyosis [Unknown]
  - Menstruation irregular [Unknown]
  - Menopausal symptoms [Unknown]
  - Menorrhagia [Unknown]
  - Seborrhoea [Unknown]
  - Swelling [Unknown]
  - General anaesthesia [Unknown]
  - Insomnia [Unknown]
  - Abdominal pain lower [Unknown]
  - Implant site pruritus [Recovered/Resolved]
  - Motion sickness [Unknown]
  - Dysmenorrhoea [Unknown]

NARRATIVE: CASE EVENT DATE: 2017
